FAERS Safety Report 15213600 (Version 1)
Quarter: 2018Q3

REPORT INFORMATION
  Report Type: Spontaneous
  Country: US (occurrence: US)
  Receive Date: 20180730
  Receipt Date: 20180730
  Transmission Date: 20181010
  Serious: Yes (Hospitalization)
  Sender: FDA-Public Use
  Company Number: US-JNJFOC-20180726669

PATIENT
  Age: 19 Year
  Sex: Female

DRUGS (1)
  1. DIPHENHYDRAMINE. [Suspect]
     Active Substance: DIPHENHYDRAMINE
     Indication: SUICIDE ATTEMPT
     Dosage: APPROX 3000 MG
     Route: 048

REACTIONS (12)
  - Mucosal dryness [Unknown]
  - Psychomotor hyperactivity [Unknown]
  - Tachycardia [Unknown]
  - Confusional state [Unknown]
  - Delirium [Unknown]
  - Exposure during pregnancy [Unknown]
  - Foetal death [Unknown]
  - Labour pain [Unknown]
  - Vaginal haemorrhage [Unknown]
  - Intentional overdose [Unknown]
  - Suicide attempt [Unknown]
  - Respiratory failure [Unknown]
